FAERS Safety Report 14581215 (Version 3)
Quarter: 2018Q1

REPORT INFORMATION
  Report Type: Spontaneous
  Country: CN (occurrence: CN)
  Receive Date: 20180228
  Receipt Date: 20180310
  Transmission Date: 20180509
  Serious: Yes (Hospitalization)
  Sender: FDA-Public Use
  Company Number: CN-JNJFOC-20180227346

PATIENT
  Age: 11 Month
  Sex: Male

DRUGS (3)
  1. MOTRIN [Suspect]
     Active Substance: IBUPROFEN
     Indication: PYREXIA
     Dosage: BEFORE 2-3 MONTHS, THE INFANT WAS ADMINISTERED WITH THIS PRODUCT 3-4ML EACH TIME, TOTAL 2-3 TIMES
     Route: 065
  2. MOTRIN [Suspect]
     Active Substance: IBUPROFEN
     Indication: PYREXIA
     Dosage: 3-4ML ONCE
     Route: 065
     Dates: start: 20180218, end: 20180218
  3. MOTRIN [Suspect]
     Active Substance: IBUPROFEN
     Indication: PYREXIA
     Dosage: 3-4ML, ONCE
     Route: 065
     Dates: start: 20180219, end: 20180219

REACTIONS (3)
  - Viral infection [Unknown]
  - Product contamination microbial [Unknown]
  - Weight decreased [Unknown]

NARRATIVE: CASE EVENT DATE: 201802
